FAERS Safety Report 5060313-X (Version None)
Quarter: 2006Q3

REPORT INFORMATION
  Report Type: 
  Country: None (occurrence: None)
  Receive Date: 20060720
  Receipt Date: 20060705
  Transmission Date: 20061208
  Serious: Yes (Hospitalization)
  Sender: FDA-Public Use
  Company Number: 8209

PATIENT
  Sex: Female

DRUGS (4)
  1. PROPAFENONE HCL [Suspect]
     Dates: start: 20060625
  2. TOPROL-XL [Concomitant]
  3. LORAZEPAM [Concomitant]
  4. CALCIUM GLUCONATE [Concomitant]

REACTIONS (4)
  - ABDOMINAL PAIN UPPER [None]
  - CHEST PAIN [None]
  - DYSGEUSIA [None]
  - PALPITATIONS [None]
